FAERS Safety Report 6759346-4 (Version None)
Quarter: 2010Q2

REPORT INFORMATION
  Report Type: 
  Country: None (occurrence: None)
  Receive Date: 20100607
  Receipt Date: 20100526
  Transmission Date: 20101027
  Serious: Yes (Hospitalization, Disabling)
  Sender: FDA-Public Use
  Company Number: US-ELI_LILLY_AND_COMPANY-US200911005517

PATIENT
  Sex: Male

DRUGS (30)
  1. ZYPREXA [Suspect]
     Indication: AFFECTIVE DISORDER
     Dosage: 15 MG, DAILY (1/D)
     Dates: start: 20010101
  2. ZYPREXA [Suspect]
     Dosage: 7.5 MG, EACH EVENING
     Dates: end: 20060101
  3. ZYPREXA [Suspect]
     Dosage: 10 MG, EACH EVENING
  4. ZYPREXA [Suspect]
     Dosage: 20 MG, EACH EVENING
  5. ZYPREXA [Suspect]
     Dosage: 2.5 MG, EACH EVENING
  6. SEROQUEL [Concomitant]
     Indication: AFFECTIVE DISORDER
     Dosage: 200 MG, EACH MORNING
     Dates: start: 20060101
  7. SEROQUEL [Concomitant]
     Dosage: 100 MEQ, DAILY (1/D)
  8. SEROQUEL [Concomitant]
     Dosage: 400 MG, EACH EVENING
  9. INDERAL [Concomitant]
     Indication: TREMOR
     Dosage: 20 MG, 3/D
     Dates: end: 20080101
  10. MIRTAZAPINE [Concomitant]
     Indication: DEPRESSION
     Dosage: 30 MG, EACH EVENING
  11. MIRTAZAPINE [Concomitant]
     Dosage: 45 MG, EACH EVENING
  12. CITALOPRAM HYDROBROMIDE [Concomitant]
     Indication: AFFECTIVE DISORDER
     Dosage: 60 MG, EACH MORNING
  13. CLONAZEPAM [Concomitant]
     Indication: AFFECTIVE DISORDER
     Dosage: 0.5 MG, 2/D
  14. CLONAZEPAM [Concomitant]
     Dosage: 0.5 MG, 3/D
  15. NEURONTIN [Concomitant]
     Dosage: 300 MG, EACH MORNING
  16. NEURONTIN [Concomitant]
     Dosage: 600 MG, EACH EVENING
  17. OXYCODONE [Concomitant]
     Indication: ARTHRALGIA
     Dosage: 5 MG, 2/D
  18. SALBUTAMOL W/IPRATROPIUM [Concomitant]
     Indication: DYSPNOEA
     Dosage: 2 D/F, 4/D
     Route: 055
  19. HYDROCODONE BITARTRATE AND ACETAMINOPHEN [Concomitant]
     Indication: PAIN
     Dosage: 1 D/F, 3/D
  20. IBUPROFEN [Concomitant]
     Dosage: 600 MG, 3/D
  21. SIMVASTATIN [Concomitant]
     Indication: BLOOD CHOLESTEROL
     Dosage: 20 MG, EACH EVENING
  22. TRAMADOL [Concomitant]
     Indication: PAIN
     Dosage: 100 MG, 3/D
  23. CORTISPORIN                        /00271401/ [Concomitant]
     Dosage: 2 D/F, 4/D
  24. MOXIFLOXACIN [Concomitant]
     Indication: INFECTION
     Dosage: 400 MG, DAILY (1/D)
  25. MORPHINE [Concomitant]
     Indication: PAIN
     Dosage: 30 MG, 3/D
  26. CYCLOBENZAPRINE [Concomitant]
     Indication: MUSCLE SPASMS
     Dosage: 10 MG, 3/D
  27. HEPATITIS A VACCINE W/HEPATITIS B VACCINE [Concomitant]
     Dosage: 1 ML, UNK
  28. NAPROXEN [Concomitant]
     Indication: PAIN
     Dosage: 500 MG, 2/D
  29. CODEINE SULFATE [Concomitant]
     Dosage: 30 MG, AS NEEDED
  30. CODEINE SULFATE [Concomitant]
     Dosage: 60 MG, AS NEEDED

REACTIONS (8)
  - DIABETES MELLITUS [None]
  - HAEMATOCRIT DECREASED [None]
  - HAEMATURIA [None]
  - HAEMOGLOBIN DECREASED [None]
  - PLATELET COUNT DECREASED [None]
  - RED BLOOD CELL COUNT DECREASED [None]
  - WEIGHT INCREASED [None]
  - WHITE BLOOD CELL COUNT DECREASED [None]
